FAERS Safety Report 4699950-0 (Version None)
Quarter: 2005Q2

REPORT INFORMATION
  Report Type: 
  Country: None (occurrence: None)
  Receive Date: 20050627
  Receipt Date: 20050607
  Transmission Date: 20051028
  Serious: Yes (Hospitalization)
  Sender: FDA-Public Use
  Company Number: JP-SOLVAY-00305001940

PATIENT
  Age: 10622 Day
  Sex: Male
  Weight: 55 kg

DRUGS (9)
  1. LEXOTAN [Concomitant]
     Indication: PARANOIA
     Dosage: DAILY DOSE: 15 MILLIGRAM(S)
     Route: 048
     Dates: start: 20031216
  2. LEXOTAN [Concomitant]
     Dosage: DAILY DOSE: 30 MILLIGRAM(S)
     Route: 048
     Dates: end: 20040112
  3. LEXOTAN [Concomitant]
     Dosage: DAILY DOSE: 15 MILLIGRAM(S)
     Route: 048
     Dates: start: 20040113, end: 20040404
  4. DEPROMEL 25 [Suspect]
     Indication: PARANOIA
     Dosage: DAILY DOSE: 50 MILLIGRAM(S)
     Route: 048
     Dates: start: 20040113, end: 20040119
  5. DEPROMEL 25 [Suspect]
     Dosage: DAILY DOSE: 100 MILLIGRAM(S)
     Route: 048
     Dates: start: 20040120, end: 20040122
  6. DEPROMEL 25 [Suspect]
     Dosage: DAILY DOSE: 150 MILLIGRAM(S)
     Route: 048
     Dates: start: 20040123, end: 20040126
  7. DEPROMEL 25 [Suspect]
     Dosage: DAILY DOSE: 100 MILLIGRAM(S)
     Route: 048
     Dates: start: 20040127, end: 20040129
  8. DEPROMEL 25 [Suspect]
     Dosage: DAILY DOSE: 50 MILLIGRAM(S)
     Route: 048
     Dates: start: 20040130, end: 20040130
  9. PAXIL [Suspect]
     Indication: PARANOIA
     Dosage: DAILY DOSE: 10 MILLIGRAM(S)
     Route: 048
     Dates: start: 20040130, end: 20040130

REACTIONS (7)
  - AGGRESSION [None]
  - DIARRHOEA [None]
  - HALLUCINATION, AUDITORY [None]
  - HEADACHE [None]
  - NAUSEA [None]
  - PERSECUTORY DELUSION [None]
  - SCHIZOPHRENIA [None]
